FAERS Safety Report 16190645 (Version 1)
Quarter: 2019Q2

REPORT INFORMATION
  Report Type: Spontaneous
  Country: US (occurrence: US)
  Receive Date: 20190412
  Receipt Date: 20190412
  Transmission Date: 20190711
  Serious: No
  Sender: FDA-Public Use
  Company Number: US-PFIZER INC-2019001345

PATIENT
  Age: 38 Year
  Sex: Male

DRUGS (4)
  1. REVATIO [Suspect]
     Active Substance: SILDENAFIL CITRATE
     Dosage: 40 MG (2 TABLETS), THRICE DAILY
     Route: 048
  2. REVATIO [Suspect]
     Active Substance: SILDENAFIL CITRATE
     Dosage: 40 MG (2 TABLETS), THRICE DAILY
     Route: 048
  3. SILDENAFIL CITRATE. [Suspect]
     Active Substance: SILDENAFIL CITRATE
     Dosage: 40 MG (2 TABLETS), THRICE DAILY
     Route: 048
  4. REVATIO [Suspect]
     Active Substance: SILDENAFIL CITRATE
     Dosage: 40 MG (2 TABLETS), THRICE DAILY
     Route: 048

REACTIONS (3)
  - Malaise [Not Recovered/Not Resolved]
  - Prescribed overdose [Unknown]
  - Condition aggravated [Unknown]
